FAERS Safety Report 7247062-4 (Version None)
Quarter: 2011Q1

REPORT INFORMATION
  Report Type: 
  Country: None (occurrence: None)
  Receive Date: 20110127
  Receipt Date: 20110117
  Transmission Date: 20110831
  Serious: Yes (Other)
  Sender: FDA-Public Use
  Company Number: US-MYLANLABS-2010S1023728

PATIENT
  Sex: Male
  Weight: 84.82 kg

DRUGS (6)
  1. VICODIN [Concomitant]
     Indication: BACK PAIN
  2. METFORMIN [Concomitant]
     Indication: DIABETES MELLITUS
  3. PROPOXYPHENE NAPSYLATE AND ACETAMINOPHEN [Suspect]
     Indication: BACK PAIN
     Route: 048
     Dates: start: 20070101, end: 20101201
  4. PROPOXYPHENE NAPSYLATE AND ACETAMINOPHEN [Suspect]
     Route: 048
     Dates: start: 20070101, end: 20101201
  5. PERCOCET [Concomitant]
     Indication: BACK PAIN
  6. ATENOLOL [Concomitant]
     Indication: BLOOD PRESSURE

REACTIONS (15)
  - SUICIDAL IDEATION [None]
  - LOSS OF CONSCIOUSNESS [None]
  - PALPITATIONS [None]
  - CONSTIPATION [None]
  - RECTAL HAEMORRHAGE [None]
  - ANXIETY [None]
  - ABASIA [None]
  - HAEMORRHOIDS [None]
  - ABDOMINAL PAIN UPPER [None]
  - VERTIGO [None]
  - NAUSEA [None]
  - BLOOD PRESSURE INCREASED [None]
  - PHOBIA [None]
  - DEPRESSION [None]
  - DIZZINESS [None]
